FAERS Safety Report 6434706-X (Version None)
Quarter: 2009Q4

REPORT INFORMATION
  Report Type: 
  Country: None (occurrence: None)
  Receive Date: 20091109
  Receipt Date: 20091109
  Transmission Date: 20100525
  Serious: Yes (Hospitalization)
  Sender: FDA-Public Use
  Company Number: None

PATIENT
  Sex: Female
  Weight: 57 kg

DRUGS (2)
  1. CLINDAMYCIN [Suspect]
     Indication: PILONIDAL CYST
     Dosage: PO
     Route: 048
  2. CEPHALEXIN [Suspect]
     Indication: URINARY TRACT INFECTION
     Dosage: 500 MG TID PO
     Route: 048
     Dates: start: 20090924, end: 20090930

REACTIONS (5)
  - BLOOD ALBUMIN DECREASED [None]
  - CLOSTRIDIUM DIFFICILE COLITIS [None]
  - DIARRHOEA HAEMORRHAGIC [None]
  - HYPOTENSION [None]
  - URINARY TRACT INFECTION [None]
